FAERS Safety Report 9302763 (Version 1)
Quarter: 2013Q2

REPORT INFORMATION
  Report Type: Report from Study
  Country: MX (occurrence: MX)
  Receive Date: 20130522
  Receipt Date: 20130522
  Transmission Date: 20140414
  Serious: Yes (Death)
  Sender: FDA-Public Use
  Company Number: PHHY2010MX64214

PATIENT
  Age: 88 Year
  Sex: Male

DRUGS (6)
  1. STALEVO [Suspect]
     Indication: PARKINSON^S DISEASE
     Dosage: 4 DF (200/100/25 MG), DAILY
     Route: 048
     Dates: start: 20090119
  2. STALEVO [Suspect]
     Dosage: 3 DF (200/50/12.5 MG), DAILY
     Route: 048
     Dates: start: 200901
  3. DIOVAN [Suspect]
  4. EXFORGE [Suspect]
  5. CO-DIOVAN [Suspect]
  6. EXELON [Suspect]

REACTIONS (2)
  - Cardiac arrest [Fatal]
  - Dizziness [Recovered/Resolved]
